FAERS Safety Report 4369038-7 (Version None)
Quarter: 2004Q2

REPORT INFORMATION
  Report Type: 
  Country: None (occurrence: None)
  Receive Date: 20040525
  Receipt Date: 20040513
  Transmission Date: 20050107
  Serious: Yes (Hospitalization, Other)
  Sender: FDA-Public Use
  Company Number: GBR-2004-0001063

PATIENT
  Age: 44 Year
  Sex: Female

DRUGS (6)
  1. OXYNORM CAPSULES 20 MG (OXYCODONE HYDROCHLORIDE) IR CAPSULE [Suspect]
     Indication: BREAST CANCER FEMALE
     Dosage: 20 MG, Q4H, ORAL
     Route: 048
     Dates: start: 20040408
  2. CHIR258L (CHIR258L) [Suspect]
     Indication: BREAST CANCER FEMALE
     Dosage: 50 MG, QID, ORAL
     Route: 048
     Dates: start: 20040324, end: 20040414
  3. GABAPENTIN [Concomitant]
  4. LANSOPRAZOLE [Concomitant]
  5. ROFECOXIB [Concomitant]
  6. CYCLIZINE (CYCLIZINE) [Concomitant]

REACTIONS (8)
  - BACK PAIN [None]
  - BREAST CANCER [None]
  - CONSTIPATION [None]
  - FALL [None]
  - INTESTINAL HYPOMOTILITY [None]
  - INTESTINAL OBSTRUCTION [None]
  - MALIGNANT NEOPLASM PROGRESSION [None]
  - VOMITING [None]
